FAERS Safety Report 8018688-5 (Version None)
Quarter: 2012Q1

REPORT INFORMATION
  Report Type: 
  Country: None (occurrence: None)
  Receive Date: 20120103
  Receipt Date: 20120103
  Transmission Date: 20120608
  Serious: Yes (Life-Threatening)
  Sender: FDA-Public Use
  Company Number: None

PATIENT
  Age: 92 Year
  Sex: Male
  Weight: 76.203 kg

DRUGS (1)
  1. FINASTERIDE [Suspect]
     Indication: PROSTATOMEGALY
     Dosage: 1 TABLET
     Route: 048
     Dates: start: 20090101, end: 20100201

REACTIONS (3)
  - NIPPLE DISORDER [None]
  - BREAST CANCER [None]
  - PRURITUS [None]
